FAERS Safety Report 6536831-1 (Version None)
Quarter: 2010Q1

REPORT INFORMATION
  Report Type: 
  Country: None (occurrence: None)
  Receive Date: 20100107
  Receipt Date: 20091222
  Transmission Date: 20100710
  Serious: Yes (Other)
  Sender: FDA-Public Use
  Company Number: AVE_01307_2009

PATIENT
  Sex: Male

DRUGS (8)
  1. NICOTINE [Suspect]
     Indication: SMOKING CESSATION THERAPY
     Dosage: 21 MG QD  TRANSDERMAL
     Route: 062
     Dates: start: 20091201, end: 20091201
  2. NICOTINE [Suspect]
     Indication: SMOKING CESSATION THERAPY
     Dosage: 14 MG QD  TRANSDERMAL
     Route: 062
     Dates: start: 20091201
  3. TEGRETOL [Suspect]
     Indication: CONVULSION
     Dosage: (200 MG 8X/DAY, ^ON AND OFF^ ORAL)
     Route: 048
  4. DIAMOX SRC [Suspect]
     Indication: CONVULSION
     Dosage: (1000 MG,  ^ON AND OFF^ ORAL)
     Route: 048
  5. CLORAZEPATE DIPOTASSIUM [Suspect]
     Indication: CONVULSION
     Dosage: (7.5 MG  BID, ^ON AND OFF^ [2 TABLETS IN AM AND 2 TABLETS IN PM] ORAL)
     Route: 048
  6. GABITRIL [Suspect]
     Indication: CONVULSION
     Dosage: (12 MG, ^ON AND OFF^ ORAL)
     Route: 048
  7. ATIVAN [Suspect]
     Indication: CONVULSION
     Dosage: (1 MG PRN,  ^ON AND OFF^ ORAL)
     Route: 048
  8. PHENERGAN HCL [Suspect]
     Indication: NAUSEA
     Dosage: (25 MG PRN, ^ON AND OFF^ ORAL)
     Route: 048

REACTIONS (4)
  - DIZZINESS [None]
  - LOWER LIMB FRACTURE [None]
  - PARTIAL SEIZURES [None]
  - SOMNOLENCE [None]
